FAERS Safety Report 6202072-0 (Version None)
Quarter: 2009Q2

REPORT INFORMATION
  Report Type: 
  Country: None (occurrence: None)
  Receive Date: 20090526
  Receipt Date: 20090515
  Transmission Date: 20091009
  Serious: Yes (Other)
  Sender: FDA-Public Use
  Company Number: US-BAXTER-2009BH008699

PATIENT

DRUGS (6)
  1. GAMMAGARD LIQUID [Suspect]
     Indication: EVANS SYNDROME
     Route: 042
  2. GAMMAGARD LIQUID [Suspect]
     Indication: OFF LABEL USE
     Route: 042
  3. CARIMUNE [Suspect]
     Indication: EVANS SYNDROME
     Route: 042
  4. ACETAMINOPHEN [Concomitant]
  5. DIPHENHYDRAMINE HCL [Concomitant]
  6. HYDROCORTISONE [Concomitant]

REACTIONS (5)
  - ANAPHYLACTOID REACTION [None]
  - CHILLS [None]
  - DRUG INTOLERANCE [None]
  - PYREXIA [None]
  - TREMOR [None]
